FAERS Safety Report 25126555 (Version 1)
Quarter: 2025Q1

REPORT INFORMATION
  Report Type: Spontaneous
  Country: US (occurrence: US)
  Receive Date: 20250327
  Receipt Date: 20250327
  Transmission Date: 20250409
  Serious: No
  Sender: ALVOGEN
  Company Number: US-ALVOGEN-2024093280

PATIENT
  Sex: Female

DRUGS (1)
  1. ESTRADIOL [Suspect]
     Active Substance: ESTRADIOL
     Indication: Product used for unknown indication
     Dates: start: 2024

REACTIONS (1)
  - Urinary tract infection bacterial [Unknown]

NARRATIVE: CASE EVENT DATE: 20240101
